FAERS Safety Report 20723107 (Version 1)
Quarter: 2022Q2

REPORT INFORMATION
  Report Type: Spontaneous
  Country: IN (occurrence: IN)
  Receive Date: 20220419
  Receipt Date: 20220419
  Transmission Date: 20220720
  Serious: Yes (Other)
  Sender: FDA-Public Use
  Company Number: IN-CIPLA LTD.-2022IN02435

PATIENT

DRUGS (17)
  1. LEVETIRACETAM [Suspect]
     Active Substance: LEVETIRACETAM
     Indication: Dissociative disorder
     Dosage: 500 MILLIGRAM, UNK
     Route: 065
  2. LEVETIRACETAM [Suspect]
     Active Substance: LEVETIRACETAM
     Indication: Myoclonic epilepsy
  3. LEVETIRACETAM [Suspect]
     Active Substance: LEVETIRACETAM
     Indication: Panic disorder
  4. LEVETIRACETAM [Suspect]
     Active Substance: LEVETIRACETAM
     Indication: Partial seizures
  5. PAROXETINE [Suspect]
     Active Substance: PAROXETINE
     Indication: Dissociative disorder
     Dosage: 25 MILLIGRAM, UNK
     Route: 065
  6. PAROXETINE [Suspect]
     Active Substance: PAROXETINE
     Indication: Myoclonic epilepsy
  7. PAROXETINE [Suspect]
     Active Substance: PAROXETINE
     Indication: Panic disorder
  8. PAROXETINE [Suspect]
     Active Substance: PAROXETINE
     Indication: Partial seizures
  9. VALPROATE [Suspect]
     Active Substance: VALPROIC ACID
     Indication: Dissociative disorder
     Dosage: 500 MILLIGRAM, UNK
     Route: 065
  10. VALPROATE [Suspect]
     Active Substance: VALPROIC ACID
     Indication: Myoclonic epilepsy
  11. VALPROATE [Suspect]
     Active Substance: VALPROIC ACID
     Indication: Panic disorder
  12. VALPROATE [Suspect]
     Active Substance: VALPROIC ACID
     Indication: Partial seizures
  13. CLONAZEPAM [Suspect]
     Active Substance: CLONAZEPAM
     Indication: Dissociative disorder
     Dosage: UNK
     Route: 065
  14. CLONAZEPAM [Suspect]
     Active Substance: CLONAZEPAM
     Indication: Myoclonic epilepsy
  15. CLONAZEPAM [Suspect]
     Active Substance: CLONAZEPAM
     Indication: Panic disorder
  16. CLONAZEPAM [Suspect]
     Active Substance: CLONAZEPAM
     Indication: Partial seizures
  17. CLOBAZAM [Suspect]
     Active Substance: CLOBAZAM
     Indication: Seizure
     Dosage: UNK
     Route: 065

REACTIONS (1)
  - Drug ineffective [Unknown]
